FAERS Safety Report 23037202 (Version 1)
Quarter: 2023Q4

REPORT INFORMATION
  Report Type: Spontaneous
  Country: NO (occurrence: NO)
  Receive Date: 20231006
  Receipt Date: 20231006
  Transmission Date: 20240110
  Serious: No
  Sender: FDA-Public Use
  Company Number: NO-ALKEM LABORATORIES LIMITED-NO-ALKEM-2023-09364

PATIENT
  Sex: Male

DRUGS (2)
  1. IBUPROFEN [Suspect]
     Active Substance: IBUPROFEN
     Indication: Procedural pain
     Dosage: UNK (TABLET)
     Route: 048
  2. ACETAMINOPHEN [Suspect]
     Active Substance: ACETAMINOPHEN
     Indication: Procedural pain
     Dosage: UNK (TABLET)
     Route: 048

REACTIONS (1)
  - Fatigue [Recovered/Resolved]
